FAERS Safety Report 15211560 (Version 1)
Quarter: 2018Q3

REPORT INFORMATION
  Report Type: Spontaneous
  Country: US (occurrence: US)
  Receive Date: 20180702
  Receipt Date: 20180702
  Transmission Date: 20181010
  Serious: Yes (Other)
  Sender: FDA-Public Use
  Company Number: None

PATIENT
  Sex: Female

DRUGS (1)
  1. IBRANCE [Suspect]
     Active Substance: PALBOCICLIB
     Indication: BREAST CANCER FEMALE
     Dosage: 75MG DAILY 21 DAYS ON AND 7 OFF PO ??NOT SPECIIED
     Route: 048
     Dates: start: 20171222

REACTIONS (5)
  - Skin disorder [None]
  - Rash [None]
  - Skin exfoliation [None]
  - Dehydration [None]
  - Asthenia [None]
